FAERS Safety Report 9521945 (Version 1)
Quarter: 2013Q1

REPORT INFORMATION
  Report Type: Spontaneous
  Country: US (occurrence: None)
  Receive Date: 20130305
  Receipt Date: 20130305
  Transmission Date: 20140127
  Serious: Yes (Death)
  Sender: FDA-Public Use
  Company Number: 163-21880-12013269

PATIENT
  Age: 88 Year
  Sex: Male

DRUGS (12)
  1. REVLIMID [Suspect]
     Indication: PLASMA CELL MYELOMA
     Dosage: 10 MG, X 28, PO
     Route: 048
     Dates: start: 20070323
  2. ASA (ACETYLSALICYLIC ACID) (ENTERIC-COATED TABLET) [Concomitant]
  3. CALCIUM (CALCIUM) (TABLETS) [Concomitant]
  4. COLACE (DOCUSATE SODIUM) (CAPSULES) [Concomitant]
  5. COUMADIN (WARFARIN SODIUM) (TABLETS) [Concomitant]
  6. EYE VITAMINS (VITAMINS) (TABLETS) [Concomitant]
  7. FOSAMAX (ALENDRONATE SODIUM) (TABLETS) [Concomitant]
  8. LASIX (FUROSEDMIDE) (TABLETS) [Concomitant]
  9. MIRALAX (MACROGOL) (POWDER) [Concomitant]
  10. SIMVASTATIN [Concomitant]
  11. SPIRONOLACTONE (SPIRONOLACTONE) (TABLETS) [Concomitant]
  12. VITAMINS B6 (PYRIDOXINE HYDROCHLORIDE) (TABLETS0 [Concomitant]

REACTIONS (2)
  - Cardiac failure congestive [None]
  - Acute myocardial infarction [None]
